FAERS Safety Report 8003815-6 (Version None)
Quarter: 2011Q4

REPORT INFORMATION
  Report Type: 
  Country: None (occurrence: None)
  Receive Date: 20111222
  Receipt Date: 20111219
  Transmission Date: 20120403
  Serious: Yes (Death)
  Sender: FDA-Public Use
  Company Number: US-PFIZER INC-2011309887

PATIENT
  Age: 30 Year
  Sex: Male

DRUGS (17)
  1. OMEPRAZOLE [Suspect]
  2. METFORMIN HYDROCHLORIDE [Suspect]
  3. IRON [Suspect]
  4. LOVASTATIN [Suspect]
  5. IPRATROPIUM BROMIDE AND ALBUTEROL SULFATE [Suspect]
  6. METOPROLOL SUCCINATE [Suspect]
  7. CLONIDINE [Suspect]
  8. GABAPENTIN [Suspect]
  9. METOLAZONE [Suspect]
  10. GALENIC /FLUTICASONE/SALMETEROL/ [Suspect]
  11. AMLODIPINE BESYLATE [Suspect]
     Route: 065
  12. CITALOPRAM HYDROBROMIDE [Suspect]
  13. FAMOTIDINE [Suspect]
  14. FUROSEMIDE [Suspect]
  15. INSULIN [Suspect]
  16. ASPIRIN [Suspect]
  17. DOCUSATE [Suspect]

REACTIONS (2)
  - TOXICITY TO VARIOUS AGENTS [None]
  - POISONING [None]
